FAERS Safety Report 11747314 (Version 1)
Quarter: 2015Q4

REPORT INFORMATION
  Report Type: Spontaneous
  Country: US (occurrence: US)
  Receive Date: 20151117
  Receipt Date: 20151117
  Transmission Date: 20160304
  Serious: Yes (Hospitalization, Other)
  Sender: FDA-Public Use
  Company Number: US-INCYTE CORPORATION-2015IN005095

PATIENT
  Age: 68 Year
  Sex: Male
  Weight: 74.9 kg

DRUGS (8)
  1. LACTASE [Concomitant]
     Active Substance: LACTASE
     Dosage: 9000 UNITS 2 TABLETS DAILY
     Route: 048
  2. CEFTIN [Concomitant]
     Active Substance: CEFUROXIME AXETIL
     Dosage: 300 MG, BID
     Route: 048
  3. OMNICEF                            /00497602/ [Concomitant]
     Active Substance: CEFOTAXIME SODIUM
     Dosage: 300 MG, BID
     Route: 048
  4. ZANTAC [Concomitant]
     Active Substance: RANITIDINE HYDROCHLORIDE
     Dosage: 75 MG, QD
  5. RANITIDINE [Concomitant]
     Active Substance: RANITIDINE\RANITIDINE HYDROCHLORIDE
     Dosage: 150 MG AT BEDTIME
     Dates: start: 20150512
  6. JAKAFI [Suspect]
     Active Substance: RUXOLITINIB
     Indication: MYELOFIBROSIS
     Dosage: 5 MG, BID
     Route: 048
     Dates: start: 20141114, end: 201505
  7. RANITIDINE [Concomitant]
     Active Substance: RANITIDINE\RANITIDINE HYDROCHLORIDE
     Dosage: 75 MG, QD
     Route: 065
  8. ZANTAC [Concomitant]
     Active Substance: RANITIDINE HYDROCHLORIDE
     Dosage: 150 MG, QD AT BEDTIME

REACTIONS (23)
  - Fatigue [Unknown]
  - Insomnia [Unknown]
  - Mesenteritis [Unknown]
  - Pancytopenia [Unknown]
  - Thrombocytopenia [Unknown]
  - Weight decreased [Unknown]
  - Constipation [Unknown]
  - Cough [Unknown]
  - Hypotension [Unknown]
  - Anaemia [Unknown]
  - Breath sounds abnormal [Unknown]
  - Contusion [Unknown]
  - Early satiety [Unknown]
  - Diarrhoea [Unknown]
  - Oedema peripheral [Unknown]
  - Pneumonia [Unknown]
  - Urinary retention [Recovered/Resolved]
  - Gastrooesophageal reflux disease [Unknown]
  - Petechiae [Unknown]
  - Sepsis [Unknown]
  - Ascites [Unknown]
  - Blood glucose increased [Unknown]
  - Splenomegaly [Unknown]

NARRATIVE: CASE EVENT DATE: 20150428
